FAERS Safety Report 19164369 (Version 2)
Quarter: 2021Q4

REPORT INFORMATION
  Report Type: Spontaneous
  Country: US (occurrence: US)
  Receive Date: 20210421
  Receipt Date: 20211105
  Transmission Date: 20220303
  Serious: No
  Sender: FDA-Public Use
  Company Number: US-PFIZER INC-2021386190

PATIENT
  Age: 62 Year
  Sex: Female

DRUGS (1)
  1. EUCRISA [Suspect]
     Active Substance: CRISABOROLE
     Indication: Skin disorder
     Dosage: UNK, 2X/DAY (100 GRAM TUBE, 5 REFILLS)
     Route: 061

REACTIONS (4)
  - Wrong technique in product usage process [Unknown]
  - Dry skin [Unknown]
  - Arthropod sting [Unknown]
  - Rash [Unknown]
